FAERS Safety Report 8182433 (Version 2)
Quarter: 2014Q1

REPORT INFORMATION
  Report Type: Report from Study
  Country: DZ (occurrence: DZ)
  Receive Date: 20111015
  Receipt Date: 20140207
  Transmission Date: 20141002
  Serious: Yes (Death)
  Sender: FDA-Public Use
  Company Number: DZ-ROCHE-1000143

PATIENT
  Age: 52 Year
  Sex: Female

DRUGS (5)
  1. TRASTUZUMAB [Suspect]
     Indication: BREAST CANCER METASTATIC
     Route: 042
     Dates: start: 20101124
  2. ZOMETA [Suspect]
     Indication: METASTASES TO BONE
     Dosage: PER CURE
     Route: 042
     Dates: start: 20101124
  3. FEMARA [Suspect]
     Route: 048
     Dates: start: 20101124, end: 20101208
  4. SKENAN [Suspect]
     Indication: PAIN
     Route: 048
     Dates: start: 20101124, end: 20101208
  5. SOLU-MEDROL [Suspect]
     Indication: DYSPNOEA
     Route: 042
     Dates: start: 20101208

REACTIONS (4)
  - Respiratory failure [Fatal]
  - Disease progression [Fatal]
  - Dyspnoea at rest [Fatal]
  - General physical condition abnormal [Fatal]
